FAERS Safety Report 21696455 (Version 2)
Quarter: 2022Q4

REPORT INFORMATION
  Report Type: Report from Study
  Country: CA (occurrence: CA)
  Receive Date: 20221207
  Receipt Date: 20221217
  Transmission Date: 20230113
  Serious: Yes (Other)
  Sender: FDA-Public Use
  Company Number: CA-ABBVIE-4222378

PATIENT
  Sex: Female

DRUGS (1)
  1. RINVOQ [Suspect]
     Active Substance: UPADACITINIB
     Indication: Rheumatoid arthritis
     Dosage: FORM STRENGTH-15 MILLIGRAM?DRUG STOP DATE- 2022
     Route: 048
     Dates: start: 20221021

REACTIONS (1)
  - Breast mass [Unknown]

NARRATIVE: CASE EVENT DATE: 20220101
